FAERS Safety Report 10224893 (Version 1)
Quarter: 2014Q2

REPORT INFORMATION
  Report Type: Spontaneous
  Country: CN (occurrence: CN)
  Receive Date: 20140609
  Receipt Date: 20140609
  Transmission Date: 20141212
  Serious: Yes (Hospitalization)
  Sender: FDA-Public Use
  Company Number: CN-GLAXOSMITHKLINE-B1001380A

PATIENT
  Sex: Female

DRUGS (1)
  1. SALBUTAMOL SULPHATE [Suspect]
     Indication: ASTHMA
     Dosage: 1ML TWICE PER DAY
     Route: 055
     Dates: start: 20130620, end: 20130620

REACTIONS (2)
  - Asphyxia [Recovering/Resolving]
  - Dyspnoea [Recovering/Resolving]
